FAERS Safety Report 7798805-2 (Version None)
Quarter: 2011Q4

REPORT INFORMATION
  Report Type: 
  Country: None (occurrence: None)
  Receive Date: 20111004
  Receipt Date: 20111004
  Transmission Date: 20120403
  Serious: Yes (Other)
  Sender: FDA-Public Use
  Company Number: None

PATIENT
  Sex: Female
  Weight: 64.4108 kg

DRUGS (1)
  1. ESTRADIOL [Suspect]
     Indication: MENOPAUSAL SYMPTOMS
     Dosage: 1 PATCH TO SKIN EVERY WEEK
     Route: 062

REACTIONS (2)
  - PRODUCT SUBSTITUTION ISSUE [None]
  - HYPERSENSITIVITY [None]
